FAERS Safety Report 8201562-9 (Version None)
Quarter: 2012Q1

REPORT INFORMATION
  Report Type: 
  Country: None (occurrence: None)
  Receive Date: 20120312
  Receipt Date: 20111116
  Transmission Date: 20120608
  Serious: Yes (Hospitalization)
  Sender: FDA-Public Use
  Company Number: US-ROCHE-1013801

PATIENT
  Sex: Male

DRUGS (1)
  1. ZELBORAF [Suspect]
     Indication: MALIGNANT MELANOMA
     Route: 048
     Dates: end: 20111110

REACTIONS (4)
  - FOREIGN BODY [None]
  - RESPIRATORY FAILURE [None]
  - DYSPHAGIA [None]
  - HYPOXIA [None]
